FAERS Safety Report 6767346-3 (Version None)
Quarter: 2010Q2

REPORT INFORMATION
  Report Type: 
  Country: None (occurrence: None)
  Receive Date: 20100611
  Receipt Date: 20100611
  Transmission Date: 20101027
  Serious: Yes (Death)
  Sender: FDA-Public Use
  Company Number: None

PATIENT
  Sex: Female
  Weight: 141 kg

DRUGS (2)
  1. PRASUGREL 10MG LILLY USA, LLC [Suspect]
     Indication: ANTICOAGULANT THERAPY
     Dosage: 1 TABLET DAILY PO
     Route: 048
     Dates: start: 20100513, end: 20100524
  2. PRASUGREL 10MG LILLY USA, LLC [Suspect]
     Indication: STENT PLACEMENT
     Dosage: 1 TABLET DAILY PO
     Route: 048
     Dates: start: 20100513, end: 20100524

REACTIONS (6)
  - FEMORAL ARTERY ANEURYSM [None]
  - GASTRIC DISORDER [None]
  - HAEMORRHAGE [None]
  - PROCEDURAL COMPLICATION [None]
  - RETROPERITONEAL HAEMATOMA [None]
  - THROMBOSIS [None]
